FAERS Safety Report 6437281-9 (Version None)
Quarter: 2009Q4

REPORT INFORMATION
  Report Type: 
  Country: None (occurrence: None)
  Receive Date: 20091104
  Receipt Date: 20090304
  Transmission Date: 20100525
  Serious: Yes (Life-Threatening)
  Sender: FDA-Public Use
  Company Number: 2009BH003687

PATIENT

DRUGS (2)
  1. DURAMORPH PF [Suspect]
     Indication: EPIDURAL ANAESTHESIA
     Dosage: ED : 6 MG; TOTAL
     Dates: start: 19981124, end: 19981124
  2. DURAMORPH PF [Suspect]
     Indication: PROCEDURAL PAIN
     Dosage: ED : 6 MG; TOTAL
     Dates: start: 19981124, end: 19981124

REACTIONS (2)
  - DEVICE MALFUNCTION [None]
  - RESPIRATORY ARREST [None]
